FAERS Safety Report 25753247 (Version 2)
Quarter: 2025Q3

REPORT INFORMATION
  Report Type: Spontaneous
  Country: US (occurrence: US)
  Receive Date: 20250903
  Receipt Date: 20250910
  Transmission Date: 20251020
  Serious: Yes (Other)
  Sender: AXSOME THERAPEUTICS
  Company Number: US-AXS-AXS202508-001518

PATIENT
  Age: 33 Year
  Sex: Female

DRUGS (3)
  1. SUNOSI [Suspect]
     Active Substance: SOLRIAMFETOL
     Indication: Narcolepsy
     Dosage: 6 AM MORNING
     Route: 048
     Dates: start: 20250702
  2. SUNOSI [Suspect]
     Active Substance: SOLRIAMFETOL
     Indication: Somnolence
     Route: 065
  3. XYWAV [Concomitant]
     Active Substance: CALCIUM OXYBATE\MAGNESIUM OXYBATE\POTASSIUM OXYBATE\SODIUM OXYBATE
     Indication: Product used for unknown indication
     Route: 065

REACTIONS (1)
  - Tardive dyskinesia [Recovered/Resolved]
